FAERS Safety Report 16110112 (Version 1)
Quarter: 2019Q1

REPORT INFORMATION
  Report Type: Spontaneous
  Country: JP (occurrence: JP)
  Receive Date: 20190325
  Receipt Date: 20190325
  Transmission Date: 20190418
  Serious: Yes (Other)
  Sender: FDA-Public Use
  Company Number: JP-TEVA-2019-JP-1029750

PATIENT
  Age: 82 Year
  Sex: Female

DRUGS (1)
  1. RISEDRONATE SODIUM - BP [Suspect]
     Active Substance: RISEDRONATE SODIUM
     Indication: OSTEOPOROSIS
     Route: 048
     Dates: start: 2010

REACTIONS (6)
  - Pain [Recovered/Resolved]
  - Bone fragmentation [Unknown]
  - Osteosclerosis [Unknown]
  - Hypoaesthesia oral [Unknown]
  - Gingivitis [Recovered/Resolved]
  - Osteonecrosis of jaw [Recovering/Resolving]
